FAERS Safety Report 10026340 (Version 2)
Quarter: 2014Q1

REPORT INFORMATION
  Report Type: Spontaneous
  Country: US (occurrence: US)
  Receive Date: 20140321
  Receipt Date: 20140321
  Transmission Date: 20141002
  Serious: No
  Sender: FDA-Public Use
  Company Number: US-ALLERGAN-1313081US

PATIENT
  Age: 80 Year
  Sex: Male

DRUGS (6)
  1. LUMIGAN [Suspect]
     Indication: GLAUCOMA
     Dosage: 2 GTT, QHS
     Route: 047
     Dates: start: 201306
  2. HYZAAR [Concomitant]
     Indication: PRODUCT USED FOR UNKNOWN INDICATION
  3. AMLODIPINE [Concomitant]
     Indication: PRODUCT USED FOR UNKNOWN INDICATION
  4. FLOMAX                             /00889901/ [Concomitant]
     Indication: PROSTATIC DISORDER
  5. AVODART [Concomitant]
     Indication: PROSTATIC DISORDER
  6. ZOCOR [Concomitant]
     Indication: BLOOD CHOLESTEROL ABNORMAL

REACTIONS (4)
  - Myalgia [Unknown]
  - Myalgia [Unknown]
  - Eye pruritus [Unknown]
  - Eye pain [Unknown]
